FAERS Safety Report 5918444-5 (Version None)
Quarter: 2008Q4

REPORT INFORMATION
  Report Type: 
  Country: None (occurrence: None)
  Receive Date: 20081015
  Receipt Date: 20081006
  Transmission Date: 20090506
  Serious: Yes (Life-Threatening, Disabling)
  Sender: FDA-Public Use
  Company Number: DE-JNJFOC-20081001131

PATIENT
  Age: 38 Year
  Sex: Male

DRUGS (10)
  1. HALOPERIDOL [Suspect]
     Indication: DRUG USE FOR UNKNOWN INDICATION
     Route: 048
  2. ERGENYL CHRONO [Interacting]
     Indication: DRUG USE FOR UNKNOWN INDICATION
     Route: 048
  3. TEGRETOL [Interacting]
     Indication: DRUG USE FOR UNKNOWN INDICATION
     Route: 048
  4. EUNERPAN [Interacting]
     Indication: DRUG USE FOR UNKNOWN INDICATION
     Route: 048
  5. LORAZEPAM [Interacting]
     Indication: DRUG USE FOR UNKNOWN INDICATION
     Route: 065
  6. SOLIAN [Interacting]
     Indication: DRUG USE FOR UNKNOWN INDICATION
     Route: 048
  7. LORAZEPAM [Interacting]
     Route: 048
  8. LORAZEPAM [Concomitant]
     Route: 042
  9. LEPONEX [Concomitant]
     Route: 048
  10. SOLIAN [Concomitant]
     Route: 048

REACTIONS (5)
  - CARDIAC ARREST [None]
  - DRUG INTERACTION [None]
  - DYSPHAGIA [None]
  - ELECTROLYTE IMBALANCE [None]
  - ENURESIS [None]
